FAERS Safety Report 7072183-9 (Version None)
Quarter: 2010Q4

REPORT INFORMATION
  Report Type: 
  Country: None (occurrence: None)
  Receive Date: 20101029
  Receipt Date: 20091214
  Transmission Date: 20110411
  Serious: No
  Sender: FDA-Public Use
  Company Number: A0834989A

PATIENT
  Age: 71 Year
  Sex: Male

DRUGS (25)
  1. ADVAIR DISKUS 100/50 [Suspect]
     Indication: ASTHMA
     Dosage: 1PUFF TWICE PER DAY
     Route: 055
     Dates: start: 20050101, end: 20090601
  2. ADVAIR DISKUS 100/50 [Suspect]
     Indication: CHRONIC OBSTRUCTIVE PULMONARY DISEASE
     Dosage: 1PUFF TWICE PER DAY
     Route: 055
     Dates: start: 20090601
  3. CLONOPIN [Concomitant]
  4. DIPHENHYDRAMINE HCL [Concomitant]
  5. NORCO [Concomitant]
  6. PROTONIX [Concomitant]
  7. ALBUTEROL [Concomitant]
  8. SINGULAIR [Concomitant]
  9. LEVOTHYROXINE [Concomitant]
  10. SPIRIVA [Concomitant]
  11. RESTASIS [Concomitant]
  12. ASCORBIC ACID [Concomitant]
  13. AMBIEN CR [Concomitant]
  14. METHOTREXATE [Concomitant]
  15. LYRICA [Concomitant]
  16. GABAPENTIN [Concomitant]
  17. ENBREL [Concomitant]
  18. FLAXSEED OIL [Concomitant]
  19. MULTI-VITAMIN [Concomitant]
  20. SENNA [Concomitant]
  21. POLYETHYLENE GLYCOL [Concomitant]
  22. HYDROCHLOROTHIAZIDE [Concomitant]
  23. FOLIC ACID [Concomitant]
  24. PREDNISONE [Concomitant]
  25. CELEXA [Concomitant]

REACTIONS (6)
  - CANDIDIASIS [None]
  - DRUG INEFFECTIVE [None]
  - DYSPHONIA [None]
  - GINGIVAL SWELLING [None]
  - SWOLLEN TONGUE [None]
  - TONGUE BITING [None]
